FAERS Safety Report 8264730-6 (Version None)
Quarter: 2012Q2

REPORT INFORMATION
  Report Type: 
  Country: None (occurrence: None)
  Receive Date: 20120406
  Receipt Date: 20120326
  Transmission Date: 20120825
  Serious: Yes (Other)
  Sender: FDA-Public Use
  Company Number: US-JNJFOC-20120314247

PATIENT
  Sex: Female
  Weight: 55.79 kg

DRUGS (4)
  1. REMICADE [Suspect]
     Route: 042
     Dates: start: 20081103
  2. REMICADE [Suspect]
     Route: 042
     Dates: start: 20081231
  3. REMICADE [Suspect]
     Indication: CROHN'S DISEASE
     Route: 042
     Dates: start: 20080909
  4. REMICADE [Suspect]
     Dosage: 4 INFUSIONS
     Route: 042
     Dates: start: 20070126, end: 20080715

REACTIONS (1)
  - BREAST CANCER IN SITU [None]
